FAERS Safety Report 4597310-4 (Version None)
Quarter: 2005Q1

REPORT INFORMATION
  Report Type: 
  Country: None (occurrence: None)
  Receive Date: 20050225
  Receipt Date: 20050225
  Transmission Date: 20050727
  Serious: Yes (Other)
  Sender: FDA-Public Use
  Company Number: None

PATIENT

DRUGS (1)
  1. ADVAIR DISKUS 100/50 [Suspect]
     Dosage: 1 INH BID
     Route: 055
     Dates: start: 20040927, end: 20041012

REACTIONS (2)
  - DYSPNOEA [None]
  - RASH [None]
